FAERS Safety Report 9168005 (Version 1)
Quarter: 2013Q1

REPORT INFORMATION
  Report Type: Spontaneous
  Country: US (occurrence: US)
  Receive Date: 20130318
  Receipt Date: 20130318
  Transmission Date: 20140127
  Serious: No
  Sender: FDA-Public Use
  Company Number: US-PFIZER INC-2013088951

PATIENT
  Sex: Female
  Weight: 58.96 kg

DRUGS (3)
  1. SERTRALINE [Suspect]
     Indication: ANXIETY
     Dosage: UNK (50MG IN HALF), 1X/DAY
     Dates: start: 20130312, end: 201303
  2. SERTRALINE [Suspect]
     Indication: OBSESSIVE-COMPULSIVE DISORDER
  3. MICROGESTIN [Concomitant]
     Indication: ORAL CONTRACEPTION
     Dosage: 1.5/30 MG, 1X/DAY

REACTIONS (1)
  - Blood pressure increased [Unknown]
